FAERS Safety Report 8479168-6 (Version None)
Quarter: 2012Q2

REPORT INFORMATION
  Report Type: 
  Country: None (occurrence: None)
  Receive Date: 20120629
  Receipt Date: 20120618
  Transmission Date: 20120825
  Serious: Yes (Hospitalization)
  Sender: FDA-Public Use
  Company Number: FR-TEVA-344749ISR

PATIENT
  Sex: Female

DRUGS (6)
  1. TAXOL [Suspect]
     Indication: OVARIAN EPITHELIAL CANCER
     Route: 042
     Dates: start: 20120209, end: 20120607
  2. POLARAMINE [Concomitant]
     Indication: PREMEDICATION
     Dosage: 5 MILLIGRAM;
     Route: 042
     Dates: start: 20120607, end: 20120607
  3. ONDANSETRON HCL [Concomitant]
     Indication: PREMEDICATION
     Dosage: 8 MILLIGRAM;
     Route: 042
     Dates: start: 20120607, end: 20120607
  4. CARBOPLATIN [Suspect]
     Indication: OVARIAN EPITHELIAL CANCER
     Route: 042
     Dates: start: 20120209, end: 20120607
  5. METHYLPREDNISOLONE [Concomitant]
     Indication: PREMEDICATION
     Dosage: 120 MILLIGRAM;
     Route: 042
     Dates: start: 20120607, end: 20120607
  6. RANITIDINE [Concomitant]
     Indication: PREMEDICATION
     Dosage: 50 MILLIGRAM;
     Route: 042
     Dates: start: 20120607, end: 20120607

REACTIONS (7)
  - MALAISE [None]
  - ABDOMINAL PAIN [None]
  - BRADYCARDIA [None]
  - ERYTHEMA [None]
  - LOSS OF CONSCIOUSNESS [None]
  - CHEST PAIN [None]
  - HYPOTENSION [None]
